FAERS Safety Report 6424405-2 (Version None)
Quarter: 2009Q4

REPORT INFORMATION
  Report Type: 
  Country: None (occurrence: None)
  Receive Date: 20091103
  Receipt Date: 20091030
  Transmission Date: 20100525
  Serious: Yes (Life-Threatening)
  Sender: FDA-Public Use
  Company Number: CN-JNJFOC-20091009169

PATIENT
  Age: 70 Year
  Sex: Male

DRUGS (3)
  1. DURAGESIC-100 [Suspect]
     Indication: CANCER PAIN
     Route: 062
  2. TRAMADOL HCL [Suspect]
     Indication: CHEST PAIN
     Route: 048
  3. MORPHINE SULFATE [Concomitant]
     Indication: CHEST PAIN
     Route: 048

REACTIONS (4)
  - HYPOREFLEXIA [None]
  - MUSCULAR WEAKNESS [None]
  - MUSCULOSKELETAL STIFFNESS [None]
  - RESPIRATORY DEPRESSION [None]
